FAERS Safety Report 9133495 (Version 1)
Quarter: 2013Q1

REPORT INFORMATION
  Report Type: Spontaneous
  Country: US (occurrence: US)
  Receive Date: 20130124
  Receipt Date: 20130124
  Transmission Date: 20140127
  Serious: Yes (Other)
  Sender: FDA-Public Use
  Company Number: US-BRACCO-007889

PATIENT
  Age: 18 Year
  Sex: Male
  Weight: 82 kg

DRUGS (3)
  1. MULTIHANCE [Suspect]
     Indication: ANGIOGRAM
     Route: 042
     Dates: start: 20120417, end: 20120417
  2. MULTIHANCE [Suspect]
     Indication: NUCLEAR MAGNETIC RESONANCE IMAGING BRAIN
     Route: 042
     Dates: start: 20120417, end: 20120417
  3. MULTIHANCE [Suspect]
     Indication: EYELID PTOSIS
     Route: 042
     Dates: start: 20120417, end: 20120417

REACTIONS (5)
  - Laryngeal oedema [Unknown]
  - Dysphagia [Unknown]
  - Nasal congestion [Unknown]
  - Urticaria [Recovered/Resolved]
  - Cough [Unknown]
